FAERS Safety Report 11699403 (Version 5)
Quarter: 2016Q2

REPORT INFORMATION
  Report Type: Spontaneous
  Country: US (occurrence: US)
  Receive Date: 20151104
  Receipt Date: 20160405
  Transmission Date: 20160815
  Serious: Yes (Hospitalization, Other)
  Sender: FDA-Public Use
  Company Number: US-ASTRAZENECA-2012SE15629

PATIENT
  Age: 803 Month
  Sex: Male
  Weight: 68 kg

DRUGS (29)
  1. SENNOSIDES. [Concomitant]
     Active Substance: SENNOSIDES
  2. ZYRTEC [Concomitant]
     Active Substance: CETIRIZINE HYDROCHLORIDE
     Dates: start: 201307
  3. CRESTOR [Suspect]
     Active Substance: ROSUVASTATIN CALCIUM
     Route: 048
     Dates: start: 200408
  4. JANUVIA [Concomitant]
     Active Substance: SITAGLIPTIN PHOSPHATE
     Dates: start: 20081001
  5. SIMVASTATIN. [Concomitant]
     Active Substance: SIMVASTATIN
  6. ATENOLOL. [Concomitant]
     Active Substance: ATENOLOL
     Indication: HYPERTENSION
     Dates: start: 200106, end: 200206
  7. CHOLECALCIFEROL [Concomitant]
     Active Substance: CHOLECALCIFEROL
  8. NIACIN. [Concomitant]
     Active Substance: NIACIN
     Indication: BLOOD CHOLESTEROL INCREASED
     Dates: start: 200902, end: 201103
  9. LOVASTATIN. [Concomitant]
     Active Substance: LOVASTATIN
     Dates: start: 200306
  10. CELEBREX [Concomitant]
     Active Substance: CELECOXIB
     Dates: start: 201307
  11. COLCHICINE. [Concomitant]
     Active Substance: COLCHICINE
     Dates: start: 199809, end: 201306
  12. VERAPAMIL [Concomitant]
     Active Substance: VERAPAMIL HYDROCHLORIDE
     Dates: start: 20081001
  13. NAPROSYN [Concomitant]
     Active Substance: NAPROXEN
     Dates: start: 20081001
  14. OMEGA 3 [Concomitant]
     Active Substance: OMEGA-3 FATTY ACIDS
     Dates: start: 20081001
  15. ASPIRIN. [Concomitant]
     Active Substance: ASPIRIN
  16. ACETAMINOPHEN. [Concomitant]
     Active Substance: ACETAMINOPHEN
  17. COREG [Concomitant]
     Active Substance: CARVEDILOL
     Indication: CORONARY ARTERY DISEASE
     Dates: start: 2008, end: 2009
  18. INDOCIN [Concomitant]
     Active Substance: INDOMETHACIN\INDOMETHACIN SODIUM
     Dates: start: 201307
  19. ALLEGRA [Concomitant]
     Active Substance: FEXOFENADINE HYDROCHLORIDE
     Dates: start: 20081001
  20. CLOPIDOGREL [Concomitant]
     Active Substance: CLOPIDOGREL BISULFATE
  21. LOSARTAN. [Concomitant]
     Active Substance: LOSARTAN
  22. ISOSORBIDE MONONITRATE. [Concomitant]
     Active Substance: ISOSORBIDE MONONITRATE
     Dates: start: 199809, end: 201306
  23. FLUNISOLIDE. [Concomitant]
     Active Substance: FLUNISOLIDE
     Dates: start: 199809, end: 201306
  24. ALLOPURINOL. [Concomitant]
     Active Substance: ALLOPURINOL
     Dates: start: 20081001
  25. CRESTOR [Suspect]
     Active Substance: ROSUVASTATIN CALCIUM
     Route: 048
     Dates: start: 200408, end: 200706
  26. CRESTOR [Suspect]
     Active Substance: ROSUVASTATIN CALCIUM
     Route: 048
     Dates: start: 200802
  27. CRESTOR [Suspect]
     Active Substance: ROSUVASTATIN CALCIUM
     Route: 048
     Dates: start: 20081001
  28. CRESTOR [Suspect]
     Active Substance: ROSUVASTATIN CALCIUM
     Dosage: TAKE ONE-HALF TABLET BY MOUTH EVERYDAY
     Route: 048
     Dates: start: 20120606
  29. NORVASC [Concomitant]
     Active Substance: AMLODIPINE BESYLATE
     Dates: start: 201307

REACTIONS (9)
  - Coronary artery disease [Unknown]
  - Type 2 diabetes mellitus [Unknown]
  - Angina pectoris [Unknown]
  - Blood cholesterol increased [Unknown]
  - Chest pain [Unknown]
  - Cardiovascular disorder [Unknown]
  - Hypertension [Unknown]
  - Myocardial infarction [Unknown]
  - Syncope [Unknown]

NARRATIVE: CASE EVENT DATE: 200708
